FAERS Safety Report 15709808 (Version 1)
Quarter: 2018Q4

REPORT INFORMATION
  Report Type: Report from Study
  Country: None (occurrence: US)
  Receive Date: 20181211
  Receipt Date: 20181211
  Transmission Date: 20190205
  Serious: Yes (Death)
  Sender: FDA-Public Use
  Company Number: US-ABBVIE-18K-163-2586690-00

PATIENT
  Age: 71 Year
  Sex: Male

DRUGS (1)
  1. VENCLEXTA [Suspect]
     Active Substance: VENETOCLAX
     Indication: MANTLE CELL LYMPHOMA
     Dosage: 100 MG/TAKE FOUR TABLETS BY MOUTH DAILY
     Route: 048
     Dates: start: 20180920, end: 20181209

REACTIONS (1)
  - Death [Fatal]

NARRATIVE: CASE EVENT DATE: 20181209
